FAERS Safety Report 22779818 (Version 4)
Quarter: 2024Q4

REPORT INFORMATION
  Report Type: Report from Study
  Country: CA (occurrence: CA)
  Receive Date: 20230803
  Receipt Date: 20241202
  Transmission Date: 20250114
  Serious: Yes (Hospitalization, Other)
  Sender: ABBVIE
  Company Number: CA-ABBVIE-5349794

PATIENT
  Age: 41 Year
  Sex: Male
  Weight: 88.4 kg

DRUGS (3)
  1. SKYRIZI [Suspect]
     Active Substance: RISANKIZUMAB-RZAA
     Indication: Crohn^s disease
     Route: 058
     Dates: start: 2023
  2. SKYRIZI [Suspect]
     Active Substance: RISANKIZUMAB-RZAA
     Route: 058
  3. SKYRIZI [Suspect]
     Active Substance: RISANKIZUMAB-RZAA
     Indication: Crohn^s disease
     Dosage: LAST ADMIN DATE 2023, FREQUENCY: AT WEEK 0, 4, 8
     Route: 042
     Dates: start: 20230627

REACTIONS (6)
  - Enterocutaneous fistula [Unknown]
  - Abdominal abscess [Unknown]
  - Small intestinal resection [Unknown]
  - Intestinal resection [Unknown]
  - Stoma creation [Unknown]
  - Stoma closure [Unknown]

NARRATIVE: CASE EVENT DATE: 20230101
